FAERS Safety Report 10640181 (Version 1)
Quarter: 2014Q4

REPORT INFORMATION
  Report Type: Spontaneous
  Country: US (occurrence: None)
  Receive Date: 20141208
  Receipt Date: 20141208
  Transmission Date: 20150529
  Serious: Yes (Other)
  Sender: FDA-Public Use
  Company Number: None

PATIENT
  Age: 64 Year
  Sex: Female
  Weight: 63.5 kg

DRUGS (1)
  1. FLUORIDE [Suspect]
     Active Substance: SODIUM FLUORIDE
     Dosage: DENTIST
     Route: 004

REACTIONS (6)
  - Dizziness [None]
  - Lethargy [None]
  - Nervous system disorder [None]
  - Memory impairment [None]
  - Muscle spasms [None]
  - Nausea [None]

NARRATIVE: CASE EVENT DATE: 20140806
